FAERS Safety Report 12055037 (Version 1)
Quarter: 2016Q1

REPORT INFORMATION
  Report Type: Spontaneous
  Country: US (occurrence: US)
  Receive Date: 20160209
  Receipt Date: 20160209
  Transmission Date: 20160526
  Serious: Yes (Other)
  Sender: FDA-Public Use
  Company Number: US-ABBVIE-15P-163-1506305-00

PATIENT
  Sex: Male

DRUGS (1)
  1. HUMIRA [Suspect]
     Active Substance: ADALIMUMAB
     Indication: RHEUMATOID ARTHRITIS
     Route: 058
     Dates: start: 201010

REACTIONS (4)
  - Hypoaesthesia [Unknown]
  - Emotional distress [Unknown]
  - Multiple sclerosis [Unknown]
  - Impaired work ability [Unknown]

NARRATIVE: CASE EVENT DATE: 201311
